FAERS Safety Report 5233948-9 (Version None)
Quarter: 2007Q1

REPORT INFORMATION
  Report Type: 
  Country: None (occurrence: None)
  Receive Date: 20070208
  Receipt Date: 20070129
  Transmission Date: 20070707
  Serious: Yes (Other)
  Sender: FDA-Public Use
  Company Number: US-PFIZER INC-2006063691

PATIENT
  Sex: Female

DRUGS (8)
  1. NEURONTIN [Suspect]
     Indication: NEURALGIA
  2. PERCOCET [Suspect]
  3. DARVOCET [Suspect]
  4. CLONAZEPAM [Suspect]
  5. ALL OTHER THERAPEUTIC PRODUCTS [Suspect]
  6. CELEBREX [Concomitant]
     Indication: ARTHRITIS
  7. ZOLOFT [Concomitant]
  8. AMBIEN [Concomitant]
     Indication: SLEEP DISORDER

REACTIONS (3)
  - DRUG INEFFECTIVE [None]
  - INTENTIONAL OVERDOSE [None]
  - SUICIDE ATTEMPT [None]
